FAERS Safety Report 9628557 (Version 2)
Quarter: 2013Q4

REPORT INFORMATION
  Report Type: Spontaneous
  Country: JP (occurrence: JP)
  Receive Date: 20131017
  Receipt Date: 20131119
  Transmission Date: 20140711
  Serious: No
  Sender: FDA-Public Use
  Company Number: PHHY2013JP116131

PATIENT
  Age: 14 Year
  Sex: Male

DRUGS (5)
  1. NEORAL [Suspect]
     Indication: NEPHROTIC SYNDROME
     Dosage: 150 MG, DAILY
     Route: 048
     Dates: start: 20130926
  2. NEORAL [Suspect]
     Dosage: 170 MG, DAILY
     Dates: start: 20131003
  3. ADRENAL CORTEX PREPARATIONS [Concomitant]
     Indication: NEPHROTIC SYNDROME
     Dosage: 60 MG, UNK
  4. BREDININ [Concomitant]
     Indication: NEPHROTIC SYNDROME
     Route: 048
  5. LONGES [Concomitant]
     Indication: NEPHROTIC SYNDROME
     Route: 048

REACTIONS (4)
  - Eyelid ptosis [Recovered/Resolved]
  - Ocular hyperaemia [Unknown]
  - Headache [Unknown]
  - Insomnia [Unknown]
